FAERS Safety Report 16333680 (Version 2)
Quarter: 2019Q2

REPORT INFORMATION
  Report Type: Report from Study
  Country: GR (occurrence: GR)
  Receive Date: 20190520
  Receipt Date: 20190604
  Transmission Date: 20190711
  Serious: Yes (Congenital Anomaly)
  Sender: FDA-Public Use
  Company Number: GR-EMD SERONO-9092444

PATIENT

DRUGS (1)
  1. GONAL-F [Suspect]
     Active Substance: FOLLITROPIN
     Indication: ASSISTED FERTILISATION

REACTIONS (1)
  - Foetal malformation [Recovered/Resolved]
